FAERS Safety Report 9013083 (Version 1)
Quarter: 2013Q1

REPORT INFORMATION
  Report Type: Spontaneous
  Country: US (occurrence: US)
  Receive Date: 20130115
  Receipt Date: 20130115
  Transmission Date: 20140127
  Serious: Yes (Other)
  Sender: FDA-Public Use
  Company Number: US-009507513-1301XAA004358

PATIENT
  Sex: Female

DRUGS (6)
  1. SINGULAIR [Suspect]
     Indication: ASTHMA
     Route: 055
  2. TEMAZEPAM [Suspect]
     Indication: INSOMNIA
  3. PROZAC [Suspect]
     Indication: DEPRESSION
  4. LEVOTHYROXINE SODIUM [Suspect]
     Indication: HYPOTHYROIDISM
  5. VENTOLIN (ALBUTEROL SULFATE) [Suspect]
     Indication: ASTHMA
  6. SERETIDE [Suspect]
     Indication: ASTHMA

REACTIONS (1)
  - Adverse event [Unknown]
